FAERS Safety Report 8036158-5 (Version None)
Quarter: 2012Q1

REPORT INFORMATION
  Report Type: 
  Country: None (occurrence: None)
  Receive Date: 20120111
  Receipt Date: 20120109
  Transmission Date: 20120608
  Serious: Yes (Hospitalization)
  Sender: FDA-Public Use
  Company Number: US-AMGEN-USASP2011056744

PATIENT
  Age: 70 Year
  Sex: Female

DRUGS (5)
  1. ENBREL [Suspect]
     Indication: SJOGREN'S SYNDROME
     Dosage: 50 MG, QWK
     Dates: start: 20020101
  2. TRAMADOL HCL [Concomitant]
     Dosage: UNK
  3. METHOTREXATE [Concomitant]
     Dosage: UNK
  4. FOLIC ACID [Concomitant]
     Dosage: UNK
  5. ENBREL [Suspect]
     Indication: PSORIATIC ARTHROPATHY
     Dosage: 50 MG, QWK
     Dates: start: 20030901

REACTIONS (4)
  - HEPATIC INFECTION BACTERIAL [None]
  - BLOOD PRESSURE INADEQUATELY CONTROLLED [None]
  - PSORIATIC ARTHROPATHY [None]
  - GASTROINTESTINAL BACTERIAL INFECTION [None]
